FAERS Safety Report 6802571-4 (Version None)
Quarter: 2010Q2

REPORT INFORMATION
  Report Type: 
  Country: None (occurrence: None)
  Receive Date: 20100629
  Receipt Date: 20090603
  Transmission Date: 20101027
  Serious: No
  Sender: FDA-Public Use
  Company Number: US-PFIZER INC-2006051221

PATIENT
  Sex: Male
  Weight: 95.3 kg

DRUGS (10)
  1. XANAX [Suspect]
     Indication: ANXIETY
     Route: 048
     Dates: start: 19910101, end: 20060301
  2. XANAX [Suspect]
     Indication: PANIC DISORDER
  3. XANAX [Suspect]
     Indication: NERVOUSNESS
  4. XANAX XR [Suspect]
     Indication: ANXIETY
     Route: 048
     Dates: start: 20060301, end: 20060402
  5. XANAX XR [Suspect]
     Indication: PANIC DISORDER
  6. XANAX XR [Suspect]
     Indication: NERVOUSNESS
  7. ALPRAZOLAM [Suspect]
     Indication: ANXIETY
     Route: 065
  8. ALPRAZOLAM [Suspect]
     Indication: SLEEP DISORDER
  9. KLONOPIN [Concomitant]
  10. DOXEPIN HYDROCHLORIDE [Concomitant]

REACTIONS (7)
  - ANXIETY [None]
  - DRUG EFFECT DECREASED [None]
  - DRUG INEFFECTIVE [None]
  - MEDICATION ERROR [None]
  - PANIC ATTACK [None]
  - SLEEP DISORDER [None]
  - WITHDRAWAL SYNDROME [None]
